FAERS Safety Report 4773506-3 (Version None)
Quarter: 2005Q3

REPORT INFORMATION
  Report Type: 
  Country: None (occurrence: None)
  Receive Date: 20050920
  Receipt Date: 20050913
  Transmission Date: 20060218
  Serious: Yes (Hospitalization)
  Sender: FDA-Public Use
  Company Number: US-BRISTOL-MYERS SQUIBB COMPANY-13109095

PATIENT
  Age: 68 Year
  Sex: Male
  Weight: 101 kg

DRUGS (2)
  1. SINEMET [Suspect]
     Indication: PARKINSON'S DISEASE
  2. COZAAR [Concomitant]

REACTIONS (12)
  - AMNESIA [None]
  - ANXIETY [None]
  - CONSTIPATION [None]
  - FAECALOMA [None]
  - FATIGUE [None]
  - FLUSHING [None]
  - HALLUCINATION, VISUAL [None]
  - IMMUNOGLOBULINS INCREASED [None]
  - MUSCULAR WEAKNESS [None]
  - NERVOUSNESS [None]
  - NIGHTMARE [None]
  - URINARY INCONTINENCE [None]
